FAERS Safety Report 21253908 (Version 5)
Quarter: 2022Q4

REPORT INFORMATION
  Report Type: Report from Study
  Country: US (occurrence: US)
  Receive Date: 20220825
  Receipt Date: 20221122
  Transmission Date: 20230113
  Serious: No
  Sender: FDA-Public Use
  Company Number: US-NOVARTISTESTPH-NVSC2022US190202

PATIENT
  Sex: Male

DRUGS (1)
  1. COSENTYX [Suspect]
     Active Substance: SECUKINUMAB
     Indication: Psoriasis
     Dosage: 300 MG
     Route: 058

REACTIONS (10)
  - Peripheral swelling [Recovering/Resolving]
  - Skin plaque [Unknown]
  - Skin exfoliation [Unknown]
  - Pruritus [Unknown]
  - Arthralgia [Unknown]
  - Pain in extremity [Unknown]
  - Asthenia [Recovering/Resolving]
  - Joint swelling [Recovering/Resolving]
  - Dry skin [Unknown]
  - Rash macular [Unknown]
